FAERS Safety Report 13712701 (Version 1)
Quarter: 2017Q3

REPORT INFORMATION
  Report Type: Spontaneous
  Country: GB (occurrence: GB)
  Receive Date: 20170703
  Receipt Date: 20170703
  Transmission Date: 20171127
  Serious: Yes (Disabling)
  Sender: FDA-Public Use
  Company Number: GB-MYLANLABS-2017M1039796

PATIENT

DRUGS (3)
  1. PYRIDOXINE [Suspect]
     Active Substance: PYRIDOXINE
     Dosage: UNK
  2. CAPECITABINE. [Suspect]
     Active Substance: CAPECITABINE
     Dosage: UNK
  3. DENOSUMAB [Suspect]
     Active Substance: DENOSUMAB

REACTIONS (1)
  - Memory impairment [Not Recovered/Not Resolved]
